FAERS Safety Report 17566235 (Version 2)
Quarter: 2020Q2

REPORT INFORMATION
  Report Type: Report from Study
  Country: CA (occurrence: CA)
  Receive Date: 20200320
  Receipt Date: 20200422
  Transmission Date: 20200713
  Serious: Yes (Hospitalization)
  Sender: FDA-Public Use
  Company Number: CA-JNJFOC-20200321517

PATIENT
  Sex: Male
  Weight: 3.63 kg

DRUGS (4)
  1. MORPHINE [Concomitant]
     Active Substance: MORPHINE
     Dates: start: 20200120, end: 20200120
  2. SIMPONI [Suspect]
     Active Substance: GOLIMUMAB
     Indication: ANKYLOSING SPONDYLITIS
     Dosage: PARENT^S DOSE
     Route: 064
     Dates: start: 20180620
  3. TYLENOL [Concomitant]
     Active Substance: ACETAMINOPHEN
     Indication: HEADACHE
  4. OXYTOCIN. [Concomitant]
     Active Substance: OXYTOCIN
     Indication: UTERINE CONTRACTIONS ABNORMAL
     Dates: start: 202001, end: 20200120

REACTIONS (6)
  - Weight decreased [Recovering/Resolving]
  - Exposure via breast milk [Unknown]
  - Respiratory rate increased [Recovering/Resolving]
  - Foetal exposure during pregnancy [Unknown]
  - Anaemia [Not Recovered/Not Resolved]
  - Urinary tract infection [Unknown]
